FAERS Safety Report 8208973-6 (Version None)
Quarter: 2012Q1

REPORT INFORMATION
  Report Type: 
  Country: None (occurrence: None)
  Receive Date: 20120314
  Receipt Date: 20120307
  Transmission Date: 20120608
  Serious: Yes (Other)
  Sender: FDA-Public Use
  Company Number: BR-PFIZER INC-2012061154

PATIENT
  Sex: Female

DRUGS (3)
  1. ASPIRIN [Concomitant]
     Dosage: TWO TABLETS DAILY
     Dates: start: 20080307
  2. XALATAN [Suspect]
     Indication: GLAUCOMA
     Dosage: ONE DROP IN BOTH EYES (3UG) 1X/DAY
     Route: 047
     Dates: start: 20110707
  3. LIPITOR [Suspect]
     Dosage: 40 MG, 1X/DAY
     Dates: start: 20090307

REACTIONS (2)
  - CEREBROVASCULAR ACCIDENT [None]
  - RETINAL VEIN THROMBOSIS [None]
